FAERS Safety Report 8970035 (Version 2)
Quarter: 2013Q1

REPORT INFORMATION
  Report Type: Spontaneous
  Country: US (occurrence: US)
  Receive Date: 20121217
  Receipt Date: 20130104
  Transmission Date: 20140127
  Serious: No
  Sender: FDA-Public Use
  Company Number: US-PFIZER INC-2012307150

PATIENT
  Age: 78 Year
  Sex: Female
  Weight: 65 kg

DRUGS (3)
  1. PREMARIN [Suspect]
     Indication: OESTROGEN REPLACEMENT THERAPY
     Dosage: UNK
     Route: 048
  2. PREMARIN [Suspect]
     Dosage: 0.625 MG, 1X/DAY
     Route: 048
  3. PROVERA [Concomitant]
     Dosage: 5 MG (2 TABLETS OF 2.5MG), UNK

REACTIONS (1)
  - Drug ineffective [Unknown]
